FAERS Safety Report 22741659 (Version 4)
Quarter: 2023Q4

REPORT INFORMATION
  Report Type: Report from Study
  Country: US (occurrence: None)
  Receive Date: 20230724
  Receipt Date: 20231123
  Transmission Date: 20240109
  Serious: Yes (Hospitalization)
  Sender: FDA-Public Use
  Company Number: US-ROCHE-3389787

PATIENT
  Age: 60 Year
  Sex: Female
  Weight: 57.4 kg

DRUGS (8)
  1. RITUXIMAB [Suspect]
     Active Substance: RITUXIMAB
     Indication: Diffuse large B-cell lymphoma
     Dosage: ON 13/JUL/2023, MOST RECENT DOSE OF STUDY DRUG PRIOR AE AND SAE IS 375 MG, ON DAY 1 OF CYCLES 1-6
     Route: 041
     Dates: start: 20230713
  2. RITUXIMAB [Suspect]
     Active Substance: RITUXIMAB
     Route: 041
  3. POLATUZUMAB VEDOTIN [Suspect]
     Active Substance: POLATUZUMAB VEDOTIN
     Indication: Diffuse large B-cell lymphoma
     Dosage: ON 14/JUL/2023, MOST RECENT DOSE OF STUDY DRUG PRIOR AE AND SAE IS 103.4 MG, ON DAY 1 OF CYCLES 1-6
     Route: 042
     Dates: start: 20230714
  4. PREDNISONE [Suspect]
     Active Substance: PREDNISONE
     Indication: Diffuse large B-cell lymphoma
     Dosage: ON 13/JUL/2023, START AND END DATE OF MOST RECENT DOSE OF STUDY DRUG PRIOR AE AND SAE IS 100 MG, FRE
     Route: 048
     Dates: start: 20230713, end: 20230713
  5. CYCLOPHOSPHAMIDE [Suspect]
     Active Substance: CYCLOPHOSPHAMIDE
     Indication: Diffuse large B-cell lymphoma
     Dosage: ON 14/JUL/2023, MOST RECENT DOSE OF STUDY DRUG PRIOR TO AE AND SAE IS 1185 MG, ON DAY 1 OF CYCLES 1-
     Route: 042
     Dates: start: 20230714
  6. DOXORUBICIN [Suspect]
     Active Substance: DOXORUBICIN
     Indication: Diffuse large B-cell lymphoma
     Dosage: ON 14/JUL/2023, MOST RECENT DOSE OF STUDY DRUG PRIOR TO AE AND SAE IS 79 MG, ON DAY 1 OF CYCLES 1-6
     Route: 042
     Dates: start: 20230714
  7. FILGRASTIM [Concomitant]
     Active Substance: FILGRASTIM
     Dosage: MEDICATION DOSE 300 OTHER
     Route: 058
     Dates: start: 20230715, end: 20230717
  8. ACETAMINOPHEN [Concomitant]
     Active Substance: ACETAMINOPHEN
     Route: 048
     Dates: start: 20230713, end: 20230713

REACTIONS (1)
  - Hyperphosphataemia [Recovered/Resolved]

NARRATIVE: CASE EVENT DATE: 20230716
